FAERS Safety Report 5015568-4 (Version None)
Quarter: 2006Q2

REPORT INFORMATION
  Report Type: 
  Country: None (occurrence: None)
  Receive Date: 20060601
  Receipt Date: 20060517
  Transmission Date: 20061013
  Serious: Yes (Hospitalization)
  Sender: FDA-Public Use
  Company Number: JP-AVENTIS-200611547JP

PATIENT
  Age: 78 Year
  Sex: Female

DRUGS (1)
  1. EUGLUCON [Suspect]
     Indication: DIABETES MELLITUS
     Route: 048

REACTIONS (3)
  - DIARRHOEA [None]
  - HYPOGLYCAEMIC ENCEPHALOPATHY [None]
  - NASOPHARYNGITIS [None]
